FAERS Safety Report 9010997 (Version 1)
Quarter: 2013Q1

REPORT INFORMATION
  Report Type: Spontaneous
  Country: US (occurrence: US)
  Receive Date: 20130109
  Receipt Date: 20130109
  Transmission Date: 20140127
  Serious: No
  Sender: FDA-Public Use
  Company Number: US-009507513-1301USA001777

PATIENT
  Sex: Male

DRUGS (6)
  1. VICTRELIS [Suspect]
     Indication: HEPATITIS C
     Dosage: 800 MG, TID
     Route: 048
     Dates: start: 20120909
  2. PEGASYS [Suspect]
  3. RIBASPHERE [Suspect]
  4. SPIRONOLACTONE [Concomitant]
  5. METROGEL (METRONIDAZOLE) [Concomitant]
  6. BYSTOLIC [Concomitant]

REACTIONS (3)
  - Depressed mood [Not Recovered/Not Resolved]
  - Fatigue [Not Recovered/Not Resolved]
  - Bronchitis [Not Recovered/Not Resolved]
